FAERS Safety Report 23838624 (Version 1)
Quarter: 2024Q2

REPORT INFORMATION
  Report Type: Spontaneous
  Country: US (occurrence: US)
  Receive Date: 20240509
  Receipt Date: 20240509
  Transmission Date: 20240716
  Serious: No
  Sender: FDA-Public Use
  Company Number: US-SA-SAC20240506001210

PATIENT
  Age: 60 Year
  Sex: Female

DRUGS (34)
  1. DUPIXENT [Suspect]
     Active Substance: DUPILUMAB
     Indication: Dermatitis atopic
     Dosage: 300 MG, QOW
     Route: 058
     Dates: start: 20240412
  2. ALBUTEROL SULFATE [Concomitant]
     Active Substance: ALBUTEROL SULFATE
     Dosage: UNK
  3. ATORVASTATIN [Concomitant]
     Active Substance: ATORVASTATIN
  4. AZITHROMYCIN [Concomitant]
     Active Substance: AZITHROMYCIN
     Dosage: UNK
  5. BENZONATATE [Concomitant]
     Active Substance: BENZONATATE
     Dosage: UNK
  6. CLOBETASOL [Concomitant]
     Active Substance: CLOBETASOL
  7. CLOPIDOGREL [Concomitant]
     Active Substance: CLOPIDOGREL BISULFATE
  8. EZETIMIBE [Concomitant]
     Active Substance: EZETIMIBE
  9. FAMOTIDINE [Concomitant]
     Active Substance: FAMOTIDINE
  10. FOLIC ACID [Concomitant]
     Active Substance: FOLIC ACID
     Dosage: UNK
  11. GABAPENTIN [Concomitant]
     Active Substance: GABAPENTIN
  12. HUMIRA [Concomitant]
     Active Substance: ADALIMUMAB
  13. LIOTHYRONINE [Concomitant]
     Active Substance: LIOTHYRONINE
  14. METHOTREXATE [Concomitant]
     Active Substance: METHOTREXATE
  15. ONDANSETRON [Concomitant]
     Active Substance: ONDANSETRON
  16. BENZONATATE [Concomitant]
     Active Substance: BENZONATATE
  17. ACETAMINOPHEN\OXYCODONE HYDROCHLORIDE [Concomitant]
     Active Substance: ACETAMINOPHEN\OXYCODONE HYDROCHLORIDE
  18. PIMECROLIMUS [Concomitant]
     Active Substance: PIMECROLIMUS
  19. PREDNISOLONE [Concomitant]
     Active Substance: PREDNISOLONE
  20. PREDNISONE [Concomitant]
     Active Substance: PREDNISONE
     Dosage: UNK
  21. PROMETHAZINE [Concomitant]
     Active Substance: PROMETHAZINE HYDROCHLORIDE
  22. PROMETHAZINE [Concomitant]
     Active Substance: PROMETHAZINE HYDROCHLORIDE
  23. ROSUVASTATIN [Concomitant]
     Active Substance: ROSUVASTATIN
  24. TERBINAFINE [Concomitant]
     Active Substance: TERBINAFINE
  25. TIZANIDINE [Concomitant]
     Active Substance: TIZANIDINE
  26. TRAMADOL HCL [Concomitant]
     Active Substance: TRAMADOL HYDROCHLORIDE
  27. TRAZODONE [Concomitant]
     Active Substance: TRAZODONE HYDROCHLORIDE
  28. UBRELVY [Concomitant]
     Active Substance: UBROGEPANT
  29. ZOLPIDEM [Concomitant]
     Active Substance: ZOLPIDEM TARTRATE
  30. DEXAMETHASONE [Concomitant]
     Active Substance: DEXAMETHASONE
  31. LEVOTHYROXINE [Concomitant]
     Active Substance: LEVOTHYROXINE\LEVOTHYROXINE SODIUM
  32. OXYCODONE [Concomitant]
     Active Substance: OXYCODONE\OXYCODONE HYDROCHLORIDE
  33. TIZANIDINE [Concomitant]
     Active Substance: TIZANIDINE
  34. METHYLPREDNISOLONE [Concomitant]
     Active Substance: METHYLPREDNISOLONE

REACTIONS (1)
  - Injection site reaction [Unknown]

NARRATIVE: CASE EVENT DATE: 20240412
